FAERS Safety Report 8990868 (Version 1)
Quarter: 2012Q4

REPORT INFORMATION
  Report Type: Spontaneous
  Country: US (occurrence: None)
  Receive Date: 20121226
  Receipt Date: 20121226
  Transmission Date: 20130627
  Serious: Yes (Other)
  Sender: FDA-Public Use
  Company Number: None

PATIENT
  Sex: Female

DRUGS (2)
  1. TYKERB 250 MG GLAXOSMITHKLEIN [Suspect]
     Route: 048
     Dates: start: 20101130, end: 20121211
  2. SEE ATTACHED [Concomitant]

REACTIONS (2)
  - Pleural effusion [None]
  - Malignant pleural effusion [None]
